FAERS Safety Report 17861180 (Version 7)
Quarter: 2023Q4

REPORT INFORMATION
  Report Type: Spontaneous
  Country: US (occurrence: US)
  Receive Date: 20200604
  Receipt Date: 20231128
  Transmission Date: 20240110
  Serious: Yes (Life-Threatening, Hospitalization, Other)
  Sender: FDA-Public Use
  Company Number: US-PFIZER INC-2020216505

PATIENT
  Age: 63 Year
  Sex: Male
  Weight: 102 kg

DRUGS (15)
  1. DESVENLAFAXINE SUCCINATE [Interacting]
     Active Substance: DESVENLAFAXINE SUCCINATE
     Indication: Depression
     Dosage: 100 MG, DAILY (XR)
     Route: 048
  2. ZIPRASIDONE HYDROCHLORIDE [Interacting]
     Active Substance: ZIPRASIDONE HYDROCHLORIDE
     Indication: Depression
     Dosage: 40 MG, 2X/DAY
     Route: 048
  3. BUPROPION [Interacting]
     Active Substance: BUPROPION
     Indication: Depression
     Dosage: 150 MG, DAILY (XL)
     Route: 048
  4. BUSPIRONE [Interacting]
     Active Substance: BUSPIRONE HYDROCHLORIDE
     Indication: Depression
     Dosage: 30 MG, 2X/DAY
     Route: 048
  5. TRAZODONE [Interacting]
     Active Substance: TRAZODONE HYDROCHLORIDE
     Indication: Depression
     Dosage: 50 MG, 1X/DAY ( AT BEDTIME, QHS)
     Route: 048
  6. TRAZODONE [Interacting]
     Active Substance: TRAZODONE HYDROCHLORIDE
     Dosage: UNK, 1X/DAY (50-150MG QHS)
     Route: 048
  7. HERBALS\MITRAGYNINE [Interacting]
     Active Substance: HERBALS\MITRAGYNINE
     Indication: Depression
     Dosage: UNK, 3X/DAY
  8. GABAPENTIN [Concomitant]
     Active Substance: GABAPENTIN
     Dosage: 800 MG, 1X/DAY (QHS)
     Route: 048
  9. DICLOFENAC [Concomitant]
     Active Substance: DICLOFENAC
     Dosage: 75 MG, 2X/DAY
     Route: 048
  10. TIZANIDINE [Concomitant]
     Active Substance: TIZANIDINE
     Dosage: 6 MG, 3X/DAY (EVERY 8 HOURS, AS NEEDED)
     Route: 048
  11. GLIMEPIRIDE [Concomitant]
     Active Substance: GLIMEPIRIDE
     Dosage: 4 MG, DAILY
     Route: 048
  12. METFORMIN [Concomitant]
     Active Substance: METFORMIN HYDROCHLORIDE
     Dosage: 500 MG, 1X/DAY (QHS)
  13. OMEPRAZOLE [Concomitant]
     Active Substance: OMEPRAZOLE
     Dosage: 40 MG, DAILY
     Route: 048
  14. HYDROCHLOROTHIAZIDE [Concomitant]
     Active Substance: HYDROCHLOROTHIAZIDE
     Dosage: 25 MG, DAILY
     Route: 048
  15. AMLODIPINE BESYLATE [Concomitant]
     Active Substance: AMLODIPINE BESYLATE
     Dosage: 5 MG, PO DAILY
     Route: 048

REACTIONS (3)
  - Serotonin syndrome [Recovered/Resolved]
  - Drug interaction [Recovered/Resolved]
  - Off label use [Unknown]
